FAERS Safety Report 24529565 (Version 2)
Quarter: 2025Q1

REPORT INFORMATION
  Report Type: Spontaneous
  Country: US (occurrence: US)
  Receive Date: 20241021
  Receipt Date: 20250211
  Transmission Date: 20250408
  Serious: Yes (Hospitalization, Disabling, Other)
  Sender: BIOMARIN
  Company Number: US-SA-2024SA295008

PATIENT

DRUGS (1)
  1. LARONIDASE [Suspect]
     Active Substance: LARONIDASE
     Indication: Mucopolysaccharidosis I
     Dosage: 46.4 TOTAL DOSE ADMINISTERED (UNITS: UNKNOWN), QW
     Route: 042
     Dates: start: 20040824

REACTIONS (2)
  - Acute myocardial infarction [Recovering/Resolving]
  - Blood cholesterol increased [Not Recovered/Not Resolved]

NARRATIVE: CASE EVENT DATE: 20240901
